FAERS Safety Report 5414162-0 (Version None)
Quarter: 2007Q3

REPORT INFORMATION
  Report Type: 
  Country: None (occurrence: None)
  Receive Date: 20070713
  Receipt Date: 20070307
  Transmission Date: 20080115
  Serious: Yes (Hospitalization, Other)
  Sender: FDA-Public Use
  Company Number: US-JNJFOC-20061004600

PATIENT
  Age: 39 Year
  Sex: Female
  Weight: 76.2043 kg

DRUGS (1)
  1. ORTHO EVRA [Suspect]
     Indication: CONTRACEPTION
     Dosage: 1 DOSES(S), 3 IN 4 WEEK, TRANSDERMAL
     Route: 062
     Dates: start: 20030801, end: 20030921

REACTIONS (3)
  - BLOOD AMYLASE INCREASED [None]
  - LIPASE INCREASED [None]
  - PULMONARY EMBOLISM [None]
